FAERS Safety Report 14271705 (Version 1)
Quarter: 2017Q4

REPORT INFORMATION
  Report Type: Spontaneous
  Country: US (occurrence: None)
  Receive Date: 20171211
  Receipt Date: 20171211
  Transmission Date: 20180321
  Serious: Yes (Hospitalization)
  Sender: FDA-Public Use
  Company Number: None

PATIENT
  Age: 79 Year
  Sex: Male

DRUGS (76)
  1. TACROLIMUS. [Suspect]
     Active Substance: TACROLIMUS
     Indication: LUNG TRANSPLANT
     Dosage: 1 MG/0.5 MG QD OR
     Route: 048
     Dates: start: 20120405
  2. CLONAZEPAM. [Concomitant]
     Active Substance: CLONAZEPAM
  3. DAPSONE. [Concomitant]
     Active Substance: DAPSONE
  4. GLUCAGON. [Concomitant]
     Active Substance: GLUCAGON
  5. HUMALOG [Concomitant]
     Active Substance: INSULIN LISPRO
  6. LEVAQUIN [Concomitant]
     Active Substance: LEVOFLOXACIN
  7. MUCINEX [Concomitant]
     Active Substance: GUAIFENESIN
  8. PREDNISONE. [Concomitant]
     Active Substance: PREDNISONE
  9. TOPROL XL [Concomitant]
     Active Substance: METOPROLOL SUCCINATE
  10. TRIAMCINOLOL [Concomitant]
  11. ZOLPIDEM [Concomitant]
     Active Substance: ZOLPIDEM\ZOLPIDEM TARTRATE
  12. AMBIEN CR [Concomitant]
     Active Substance: ZOLPIDEM TARTRATE
  13. BACTRIM [Concomitant]
     Active Substance: SULFAMETHOXAZOLE\TRIMETHOPRIM
  14. CIPROFLOXACN [Concomitant]
     Active Substance: CIPROFLOXACIN
  15. DEL STAT [Concomitant]
  16. FLONASE [Concomitant]
     Active Substance: FLUTICASONE PROPIONATE
  17. HYDROCO/APAP [Concomitant]
     Active Substance: ACETAMINOPHEN\HYDROCODONE
  18. KLONOPIN [Concomitant]
     Active Substance: CLONAZEPAM
  19. LACTOBACILLU [Concomitant]
  20. METOCLOPRAM [Concomitant]
     Active Substance: METOCLOPRAMIDE
  21. METOPROLOL TARTRATE. [Concomitant]
     Active Substance: METOPROLOL TARTRATE
  22. METRONDAZOL [Concomitant]
  23. NEXIUM [Concomitant]
     Active Substance: ESOMEPRAZOLE MAGNESIUM
  24. PANTOPRAZOLE [Concomitant]
     Active Substance: PANTOPRAZOLE
  25. SOTALOL HCL [Concomitant]
     Active Substance: SOTALOL
  26. TAMSULOSIN [Concomitant]
     Active Substance: TAMSULOSIN
  27. XOPENEX [Concomitant]
     Active Substance: LEVALBUTEROL HYDROCHLORIDE
  28. ZALEPLON. [Concomitant]
     Active Substance: ZALEPLON
  29. ZYVOX [Concomitant]
     Active Substance: LINEZOLID
  30. MYCOPHENOLIC [Suspect]
     Active Substance: MYCOPHENOLIC ACID
     Indication: LUNG TRANSPLANT
     Route: 048
     Dates: start: 20140217
  31. MYCOPHENOLIC [Suspect]
     Active Substance: MYCOPHENOLIC ACID
     Indication: LIVER TRANSPLANT
     Route: 048
     Dates: start: 20140217
  32. ACETYLCYST [Concomitant]
  33. ALBUTEROL. [Concomitant]
     Active Substance: ALBUTEROL
  34. CELLCEPT [Concomitant]
     Active Substance: MYCOPHENOLATE MOFETIL\MYCOPHENOLATE MOFETIL HYDROCHLORIDE
  35. FEXOFENADINE [Concomitant]
     Active Substance: FEXOFENADINE\FEXOFENADINE HYDROCHLORIDE
  36. FUROSEMIDE. [Concomitant]
     Active Substance: FUROSEMIDE
  37. HYDROCHLOROT [Concomitant]
     Active Substance: HYDROCHLOROTHIAZIDE
  38. MAG-G [Concomitant]
     Active Substance: MAGNESIUM GLUCONATE
  39. MAGNESIUM GL [Concomitant]
  40. NYSTATIN. [Concomitant]
     Active Substance: NYSTATIN
  41. ADVAIR DSKU [Concomitant]
  42. BUMETANIDE. [Concomitant]
     Active Substance: BUMETANIDE
  43. CULTURELLE [Concomitant]
     Active Substance: LACTOBACILLUS RHAMNOSUS
  44. FLUDROCORT [Concomitant]
  45. IPRATROPIUM [Concomitant]
     Active Substance: IPRATROPIUM
  46. LANSOPRAZOLE. [Concomitant]
     Active Substance: LANSOPRAZOLE
  47. LANTUS [Concomitant]
     Active Substance: INSULIN GLARGINE
  48. VFEND [Concomitant]
     Active Substance: VORICONAZOLE
  49. AMOXICILLIN. [Concomitant]
     Active Substance: AMOXICILLIN
  50. AVELOX [Concomitant]
     Active Substance: MOXIFLOXACIN HYDROCHLORIDE
  51. CLARITHROMYC [Concomitant]
  52. METOPROLOL. [Concomitant]
     Active Substance: METOPROLOL
  53. ONETOUCH [Concomitant]
  54. PRINIVIL [Concomitant]
     Active Substance: LISINOPRIL
  55. VALCYTE [Concomitant]
     Active Substance: VALGANCICLOVIR HYDROCHLORIDE
  56. TACROLIMUS. [Suspect]
     Active Substance: TACROLIMUS
     Indication: LIVER TRANSPLANT
     Dosage: 1 MG/0.5 MG QD OR
     Route: 048
     Dates: start: 20120405
  57. AMOX/K CLAV [Concomitant]
     Active Substance: AMOXICILLIN\CLAVULANATE POTASSIUM
  58. AZELASTINE. [Concomitant]
     Active Substance: AZELASTINE HYDROCHLORIDE
  59. NOXAFIL [Concomitant]
     Active Substance: POSACONAZOLE
  60. PROGRAF [Concomitant]
     Active Substance: TACROLIMUS\TACROLIMUS ANHYDROUS
  61. PROTONIX [Concomitant]
     Active Substance: PANTOPRAZOLE SODIUM
  62. AMBIEN [Concomitant]
     Active Substance: ZOLPIDEM TARTRATE
  63. FLUOROURACIL. [Concomitant]
     Active Substance: FLUOROURACIL
  64. FLUTICASONE. [Concomitant]
     Active Substance: FLUTICASONE
  65. SMZ-TMP [Concomitant]
     Active Substance: SULFAMETHOXAZOLE\TRIMETHOPRIM
  66. VIAGRA [Concomitant]
     Active Substance: SILDENAFIL CITRATE
  67. FAMOTIDINE. [Concomitant]
     Active Substance: FAMOTIDINE
  68. INSULIN [Concomitant]
     Active Substance: INSULIN NOS
  69. LASIX [Concomitant]
     Active Substance: FUROSEMIDE
  70. LIPITOR [Concomitant]
     Active Substance: ATORVASTATIN CALCIUM
  71. LISINOPRIL. [Concomitant]
     Active Substance: LISINOPRIL
  72. MULTI TAB FOR HIM [Concomitant]
  73. NEUPOGEN [Concomitant]
     Active Substance: FILGRASTIM
  74. REVATIO [Concomitant]
     Active Substance: SILDENAFIL CITRATE
  75. SMZ/TMP DS [Concomitant]
     Active Substance: SULFAMETHOXAZOLE\TRIMETHOPRIM
  76. VANCOCIN [Concomitant]
     Active Substance: VANCOMYCIN HYDROCHLORIDE

REACTIONS (2)
  - Bronchitis [None]
  - Pneumonia [None]
